FAERS Safety Report 16371652 (Version 1)
Quarter: 2019Q2

REPORT INFORMATION
  Report Type: Spontaneous
  Country: IN (occurrence: IN)
  Receive Date: 20190530
  Receipt Date: 20190530
  Transmission Date: 20190711
  Serious: Yes (Other)
  Sender: FDA-Public Use
  Company Number: IN-PFIZER INC-2019105849

PATIENT
  Age: 62 Year
  Sex: Female

DRUGS (4)
  1. LETROZ [Concomitant]
     Dosage: UNK
     Dates: start: 201807
  2. THYRONORM [Concomitant]
     Active Substance: LEVOTHYROXINE
     Dosage: 125 UG, 1X/DAY
  3. ZOBONE [Concomitant]
     Dosage: UNK
     Dates: start: 201807
  4. PALBACE [Suspect]
     Active Substance: PALBOCICLIB
     Indication: BREAST CANCER METASTATIC
     Dosage: 125 MG, CYCLIC (ONCE A DAY)
     Route: 048
     Dates: start: 20180704

REACTIONS (2)
  - White blood cell count decreased [Unknown]
  - Multiple sclerosis [Unknown]

NARRATIVE: CASE EVENT DATE: 20180919
